FAERS Safety Report 5430828-0 (Version None)
Quarter: 2007Q3

REPORT INFORMATION
  Report Type: 
  Country: None (occurrence: None)
  Receive Date: 20070830
  Receipt Date: 20061206
  Transmission Date: 20080115
  Serious: No
  Sender: FDA-Public Use
  Company Number: A0630625A

PATIENT
  Sex: Female

DRUGS (1)
  1. WELLBUTRIN XL [Suspect]
     Indication: DRUG USE FOR UNKNOWN INDICATION
     Dosage: 150MG UNKNOWN
     Route: 048
     Dates: start: 20061101

REACTIONS (4)
  - HEADACHE [None]
  - INSOMNIA [None]
  - NERVOUSNESS [None]
  - TREMOR [None]
